FAERS Safety Report 5630544-6 (Version None)
Quarter: 2008Q1

REPORT INFORMATION
  Report Type: 
  Country: None (occurrence: None)
  Receive Date: 20080219
  Receipt Date: 20080218
  Transmission Date: 20080703
  Serious: Yes (Other)
  Sender: FDA-Public Use
  Company Number: B0508575A

PATIENT
  Sex: Female

DRUGS (1)
  1. NICORETTE [Suspect]
     Route: 048
     Dates: start: 19880101

REACTIONS (2)
  - DEPENDENCE [None]
  - INCORRECT DRUG ADMINISTRATION DURATION [None]
